FAERS Safety Report 6691468-9 (Version None)
Quarter: 2010Q2

REPORT INFORMATION
  Report Type: 
  Country: None (occurrence: None)
  Receive Date: 20100422
  Receipt Date: 20100412
  Transmission Date: 20101027
  Serious: Yes (Other)
  Sender: FDA-Public Use
  Company Number: PK-NOVOPROD-306979

PATIENT
  Sex: Female
  Weight: 66 kg

DRUGS (4)
  1. NOVOMIX 30 [Suspect]
     Indication: TYPE 2 DIABETES MELLITUS
     Dosage: 44 U, QD
     Route: 058
     Dates: start: 20100327, end: 20100408
  2. GLUCOPHAGE [Concomitant]
     Indication: TYPE 2 DIABETES MELLITUS
     Dosage: 1 G, QD
     Route: 048
     Dates: start: 20060101
  3. CIPRAM [Concomitant]
     Indication: DEPRESSION
     Dosage: 10 MG, QD
     Route: 048
     Dates: start: 19950101
  4. LIVIAL [Concomitant]
     Dosage: 10 MG, QD
     Route: 048
     Dates: start: 20080101

REACTIONS (6)
  - BONE PAIN [None]
  - GLYCOSYLATED HAEMOGLOBIN INCREASED [None]
  - INJECTION SITE DISCOLOURATION [None]
  - INJECTION SITE MASS [None]
  - INJECTION SITE PAIN [None]
  - LETHARGY [None]
